FAERS Safety Report 22003274 (Version 1)
Quarter: 2023Q1

REPORT INFORMATION
  Report Type: Spontaneous
  Country: FR (occurrence: FR)
  Receive Date: 20230217
  Receipt Date: 20230217
  Transmission Date: 20230417
  Serious: Yes (Death)
  Sender: FDA-Public Use
  Company Number: None

PATIENT
  Age: 85 Year
  Sex: Male
  Weight: 76 kg

DRUGS (1)
  1. METFORMIN [Suspect]
     Active Substance: METFORMIN HYDROCHLORIDE
     Indication: Diabetes mellitus
     Dosage: 1G 3 TIMES A DAY
     Route: 065
     Dates: end: 20230111

REACTIONS (2)
  - Lactic acidosis [Fatal]
  - Overdose [Fatal]

NARRATIVE: CASE EVENT DATE: 20230111
